FAERS Safety Report 8738586 (Version 2)
Quarter: 2012Q4

REPORT INFORMATION
  Report Type: 
  Country: US (occurrence: US)
  Receive Date: 20120823
  Receipt Date: 20120910
  Transmission Date: 20130627
  Serious: Yes (Other)
  Sender: FDA-Public Use
  Company Number: PHEH2012US016451

PATIENT
  Age: 44 Year
  Sex: Female
  Weight: 77.14 kg

DRUGS (4)
  1. AFINITOR [Suspect]
     Indication: BREAST CANCER
     Dosage: 10 mg, daily
     Route: 048
     Dates: start: 20120605
  2. AFINITOR [Suspect]
     Dosage: 10 mg, daily
  3. AFINITOR [Suspect]
  4. AROMASIN [Concomitant]
     Indication: BREAST CANCER
     Dosage: 2.5 mg, daily
     Route: 048
     Dates: start: 20120506

REACTIONS (2)
  - Dermatitis [Unknown]
  - Pruritus [Recovering/Resolving]
